FAERS Safety Report 5815040-5 (Version None)
Quarter: 2008Q3

REPORT INFORMATION
  Report Type: 
  Country: None (occurrence: None)
  Receive Date: 20080718
  Receipt Date: 20080715
  Transmission Date: 20090109
  Serious: Yes (Hospitalization)
  Sender: FDA-Public Use
  Company Number: B0529192A

PATIENT
  Age: 76 Year
  Sex: Female

DRUGS (1)
  1. ARIXTRA [Suspect]
     Indication: DRUG USE FOR UNKNOWN INDICATION
     Dosage: 1.5MG PER DAY
     Route: 058
     Dates: start: 20080625, end: 20080701

REACTIONS (1)
  - PULMONARY EMBOLISM [None]
